FAERS Safety Report 5678715-7 (Version None)
Quarter: 2008Q1

REPORT INFORMATION
  Report Type: 
  Country: None (occurrence: None)
  Receive Date: 20080324
  Receipt Date: 20080324
  Transmission Date: 20080703
  Serious: Yes (Hospitalization)
  Sender: FDA-Public Use
  Company Number: None

PATIENT
  Age: 47 Year
  Sex: Male

DRUGS (1)
  1. VYTORIN [Suspect]
     Dosage: 1 TAB QDAY PO
     Route: 048

REACTIONS (1)
  - RHABDOMYOLYSIS [None]
